FAERS Safety Report 7860039-0 (Version None)
Quarter: 2011Q4

REPORT INFORMATION
  Report Type: 
  Country: None (occurrence: None)
  Receive Date: 20111025
  Receipt Date: 20111012
  Transmission Date: 20120403
  Serious: Yes (Hospitalization, Other)
  Sender: FDA-Public Use
  Company Number: ACO_27277_2011

PATIENT
  Age: 62 Year
  Sex: Female

DRUGS (2)
  1. REBIF [Concomitant]
  2. AMPYRA [Suspect]
     Indication: THROMBOCYTOPENIA
     Dosage: 10 MG, BID, ORAL
     Route: 048
     Dates: start: 20101021, end: 20110101

REACTIONS (4)
  - PAIN [None]
  - JOINT SWELLING [None]
  - ARTHROPATHY [None]
  - OEDEMA PERIPHERAL [None]
